FAERS Safety Report 8923732 (Version 1)
Quarter: 2012Q4

REPORT INFORMATION
  Report Type: 
  Country: CA (occurrence: CA)
  Receive Date: 20121126
  Receipt Date: 20121126
  Transmission Date: 20130627
  Serious: Yes (Other)
  Sender: FDA-Public Use
  Company Number: CA-ROCHE-1159503

PATIENT

DRUGS (2)
  1. XOLAIR [Suspect]
     Indication: PRODUCT USED FOR UNKNOWN INDICATION
     Route: 065
     Dates: start: 20080414
  2. FLOVENT [Concomitant]

REACTIONS (5)
  - Hypersensitivity [Recovered/Resolved]
  - Upper-airway cough syndrome [Unknown]
  - Secretion discharge [Unknown]
  - Dyspnoea [Unknown]
  - Cough [Unknown]
